FAERS Safety Report 6648700-7 (Version None)
Quarter: 2010Q1

REPORT INFORMATION
  Report Type: 
  Country: None (occurrence: None)
  Receive Date: 20100324
  Receipt Date: 20100312
  Transmission Date: 20100710
  Serious: Yes (Life-Threatening)
  Sender: FDA-Public Use
  Company Number: IT-PFIZER INC-2010032869

PATIENT
  Sex: Male

DRUGS (1)
  1. AZITHROMYCIN [Suspect]

REACTIONS (1)
  - ASTHMATIC CRISIS [None]
